FAERS Safety Report 10909610 (Version 1)
Quarter: 2015Q1

REPORT INFORMATION
  Report Type: Spontaneous
  Country: US (occurrence: US)
  Receive Date: 20150312
  Receipt Date: 20150312
  Transmission Date: 20150721
  Serious: No
  Sender: FDA-Public Use
  Company Number: US-SA-2014SA067511

PATIENT
  Age: 75 Year
  Sex: Female
  Weight: 99.79 kg

DRUGS (2)
  1. NASACORT ALLERGY 24HR [Suspect]
     Active Substance: TRIAMCINOLONE ACETONIDE
     Indication: PERENNIAL ALLERGY
     Route: 065
     Dates: start: 20140515
  2. NASACORT ALLERGY 24HR [Suspect]
     Active Substance: TRIAMCINOLONE ACETONIDE
     Indication: NASAL CONGESTION
     Route: 065
     Dates: start: 20140515

REACTIONS (5)
  - Anxiety [Unknown]
  - Insomnia [Unknown]
  - Nervous system disorder [Recovered/Resolved]
  - Nervousness [Unknown]
  - Hypersensitivity [Unknown]
